FAERS Safety Report 16470576 (Version 1)
Quarter: 2019Q2

REPORT INFORMATION
  Report Type: Spontaneous
  Country: US (occurrence: US)
  Receive Date: 20190624
  Receipt Date: 20190624
  Transmission Date: 20190711
  Serious: Yes (Hospitalization)
  Sender: FDA-Public Use
  Company Number: US-TEVA-2019-US-1065239

PATIENT
  Sex: Female
  Weight: 109 kg

DRUGS (5)
  1. NARCAN [Concomitant]
     Active Substance: NALOXONE HYDROCHLORIDE
     Route: 065
  2. ATIVAN [Concomitant]
     Active Substance: LORAZEPAM
     Route: 065
  3. FAMOTIDINE. [Concomitant]
     Active Substance: FAMOTIDINE
     Route: 065
  4. ZOFRAN [Concomitant]
     Active Substance: ONDANSETRON HYDROCHLORIDE
     Route: 065
  5. FENTORA [Suspect]
     Active Substance: FENTANYL CITRATE
     Indication: DYSTONIA
     Dosage: FOR EVERY 3 HOURS
     Route: 002

REACTIONS (2)
  - Dystonia [Unknown]
  - Product use in unapproved indication [Unknown]
